FAERS Safety Report 20796046 (Version 4)
Quarter: 2024Q1

REPORT INFORMATION
  Report Type: Spontaneous
  Country: US (occurrence: US)
  Receive Date: 20220506
  Receipt Date: 20240125
  Transmission Date: 20240409
  Serious: Yes (Other)
  Sender: FDA-Public Use
  Company Number: US-PFIZER INC-202200661261

PATIENT
  Age: 64 Year
  Sex: Female

DRUGS (1)
  1. XELJANZ XR [Suspect]
     Active Substance: TOFACITINIB CITRATE
     Indication: Rheumatoid arthritis
     Dosage: 11 MG, 1X/DAY
     Route: 048
     Dates: start: 202203

REACTIONS (13)
  - Shoulder operation [Unknown]
  - Throat clearing [Unknown]
  - Drainage [Unknown]
  - Illness [Unknown]
  - Upper respiratory tract infection [Unknown]
  - Sinusitis [Unknown]
  - Cough [Not Recovered/Not Resolved]
  - Hypersensitivity [Unknown]
  - Migraine [Unknown]
  - Seasonal allergy [Unknown]
  - Oropharyngeal discomfort [Unknown]
  - Pain [Unknown]
  - Throat irritation [Unknown]

NARRATIVE: CASE EVENT DATE: 20220101
